FAERS Safety Report 25229494 (Version 1)
Quarter: 2025Q2

REPORT INFORMATION
  Report Type: Report from Study
  Country: US (occurrence: US)
  Receive Date: 20250423
  Receipt Date: 20250423
  Transmission Date: 20250717
  Serious: Yes (Other)
  Sender: ROCHE
  Company Number: US-ROCHE-10000266177

PATIENT
  Age: 31 Year
  Sex: Male

DRUGS (1)
  1. HEMLIBRA [Suspect]
     Active Substance: EMICIZUMAB-KXWH
     Indication: Factor VIII deficiency
     Dosage: INJECT 4ML (600MG) SUBCUTANEOUSLY EVERY 28 DAY(S) SPLIT DOSES OVER 2ML INTO 2 SEPARATE INJECTIONS
     Route: 058

REACTIONS (1)
  - Alcohol abuse [Unknown]
